FAERS Safety Report 8738127 (Version 2)
Quarter: 2012Q4

REPORT INFORMATION
  Report Type: 
  Country: AR (occurrence: AR)
  Receive Date: 20120823
  Receipt Date: 20120904
  Transmission Date: 20130627
  Serious: Yes (Other)
  Sender: FDA-Public Use
  Company Number: AR-AMGEN-ARGSP2012052600

PATIENT
  Age: 35 Year
  Sex: Male

DRUGS (2)
  1. ENBREL [Suspect]
     Indication: PSORIATIC ARTHROPATHY
     Dosage: 50 mg, monthly
     Dates: start: 19761025
  2. ENBREL [Suspect]
     Dosage: 50 mg, monthly
     Route: 058
     Dates: start: 20110201

REACTIONS (1)
  - Psoriatic arthropathy [Recovering/Resolving]
